FAERS Safety Report 10081781 (Version 1)
Quarter: 2014Q2

REPORT INFORMATION
  Report Type: Spontaneous
  Country: FR (occurrence: FR)
  Receive Date: 20140416
  Receipt Date: 20140416
  Transmission Date: 20141212
  Serious: Yes (Hospitalization)
  Sender: FDA-Public Use
  Company Number: FR-TEVA-474208ISR

PATIENT
  Age: 44 Year
  Sex: Female

DRUGS (9)
  1. LEVETIRACETAM TEVA [Suspect]
     Dosage: 3000 GRAM DAILY;
     Route: 048
     Dates: start: 2012
  2. MINIRINMELT [Concomitant]
     Dosage: 720 MICROGRAM DAILY;
     Route: 048
  3. HYDROCORTISONE ROUSSEL [Concomitant]
     Dosage: 30 MILLIGRAM DAILY;
     Route: 048
  4. DEPAKINE [Concomitant]
     Dosage: 1500 MILLIGRAM DAILY;
     Route: 048
  5. SABRIL [Concomitant]
     Dosage: 2000 MILLIGRAM DAILY;
     Route: 048
  6. LAMOTRIGINE BIOGARAN [Concomitant]
     Dosage: 100 MILLIGRAM DAILY;
     Route: 048
  7. CRESTOR [Concomitant]
     Dosage: 5 MILLIGRAM DAILY;
     Route: 048
  8. ATARAX [Concomitant]
     Dosage: 25 MILLIGRAM DAILY;
     Route: 048
  9. MOVICOL [Concomitant]
     Route: 048

REACTIONS (1)
  - Hypoglycaemia [Recovering/Resolving]
